FAERS Safety Report 6359674-0 (Version None)
Quarter: 2009Q3

REPORT INFORMATION
  Report Type: 
  Country: None (occurrence: None)
  Receive Date: 20090917
  Receipt Date: 20090914
  Transmission Date: 20100115
  Serious: Yes (Hospitalization, Other)
  Sender: FDA-Public Use
  Company Number: US-AMGEN-US349614

PATIENT
  Sex: Male
  Weight: 94 kg

DRUGS (24)
  1. NPLATE [Suspect]
     Indication: IDIOPATHIC THROMBOCYTOPENIC PURPURA
     Route: 058
     Dates: start: 20090513
  2. NPLATE [Suspect]
     Dates: start: 20090527
  3. NOVOLOG [Suspect]
     Dates: start: 20090326
  4. LISINOPRIL [Concomitant]
     Dates: start: 20090326
  5. LANTUS [Concomitant]
     Dates: start: 20090326
  6. DECADRON [Concomitant]
     Route: 048
     Dates: start: 20090508, end: 20090514
  7. DECADRON [Concomitant]
     Route: 042
     Dates: start: 20090517, end: 20090519
  8. DECADRON [Concomitant]
     Route: 048
     Dates: start: 20090522, end: 20090527
  9. DECADRON [Concomitant]
     Dates: start: 20090527, end: 20090529
  10. DECADRON [Concomitant]
     Route: 042
     Dates: start: 20090530, end: 20090530
  11. DECADRON [Concomitant]
     Route: 042
     Dates: start: 20090531, end: 20090531
  12. DECADRON [Concomitant]
     Route: 042
     Dates: start: 20090602, end: 20090610
  13. DECADRON [Concomitant]
     Route: 048
     Dates: start: 20090611
  14. DECADRON [Concomitant]
  15. CORTICOSTEROIDS [Concomitant]
     Dates: start: 20090219
  16. RITUXIMAB [Concomitant]
     Dates: start: 20090319, end: 20090604
  17. BACTRIM DS [Concomitant]
  18. NORVASC [Concomitant]
     Dates: start: 20090326
  19. PROTONIX [Concomitant]
     Dates: start: 20090715
  20. MIRALAX [Concomitant]
  21. SENOKOT [Concomitant]
  22. SOLU-MEDROL [Concomitant]
     Route: 065
     Dates: start: 20090430, end: 20090508
  23. RESTORIL [Concomitant]
     Dates: start: 20090331
  24. NYSTATIN [Concomitant]

REACTIONS (3)
  - BLOOD GLUCOSE ABNORMAL [None]
  - LIVER FUNCTION TEST ABNORMAL [None]
  - WEIGHT DECREASED [None]
